FAERS Safety Report 8991949 (Version 2)
Quarter: 2013Q2

REPORT INFORMATION
  Report Type: Report from Study
  Country: BR (occurrence: BR)
  Receive Date: 20121231
  Receipt Date: 20130404
  Transmission Date: 20140414
  Serious: Yes (Hospitalization, Other)
  Sender: FDA-Public Use
  Company Number: BR-ABBOTT-12P-020-1028218-00

PATIENT
  Age: 51 Year
  Sex: Female
  Weight: 39.5 kg

DRUGS (3)
  1. HUMIRA [Suspect]
     Indication: RHEUMATOID ARTHRITIS
     Route: 058
     Dates: start: 20100301, end: 201210
  2. METHOTREXATE [Concomitant]
     Indication: RHEUMATOID ARTHRITIS
     Route: 048
     Dates: start: 201212
  3. CALCIUM [Concomitant]
     Indication: BONE DISORDER
     Route: 048
     Dates: start: 201212

REACTIONS (3)
  - Cardiac disorder [Unknown]
  - Fatigue [Recovering/Resolving]
  - Tuberculosis [Recovering/Resolving]
